FAERS Safety Report 21715218 (Version 2)
Quarter: 2023Q1

REPORT INFORMATION
  Report Type: Report from Study
  Country: US (occurrence: US)
  Receive Date: 20221212
  Receipt Date: 20230128
  Transmission Date: 20230417
  Serious: No
  Sender: FDA-Public Use
  Company Number: US-ABBVIE-4178842

PATIENT
  Sex: Female

DRUGS (5)
  1. HUMIRA [Suspect]
     Active Substance: ADALIMUMAB
     Indication: Crohn^s disease
     Dosage: CITRATE FREE, FORM STRENGTH: 40 MG
     Route: 058
  2. HUMIRA [Suspect]
     Active Substance: ADALIMUMAB
     Dosage: CITRATE FREE, DOSE INCREASED, FORM STRENGTH: 40 MG
     Route: 058
  3. HUMIRA [Suspect]
     Active Substance: ADALIMUMAB
     Indication: Crohn^s disease
     Dosage: LAST ADMIN DATE - 2022, CITRATE FREE, FORM STRENGTH: 40 MG
     Route: 058
     Dates: start: 20220301
  4. HUMIRA [Suspect]
     Active Substance: ADALIMUMAB
     Dosage: CITRATE FREE, FORM STRENGTH: 40 MG
     Route: 058
     Dates: start: 20220414
  5. PFIZER-BIONTECH COVID-19 VACCINE [Concomitant]
     Active Substance: TOZINAMERAN
     Indication: COVID-19 immunisation
     Dosage: COVID VACCINE?ONE IN ONCE
     Route: 030

REACTIONS (8)
  - Inflammation [Recovering/Resolving]
  - Pyrexia [Recovering/Resolving]
  - Diarrhoea [Unknown]
  - Pharyngitis streptococcal [Unknown]
  - Abdominal pain upper [Recovering/Resolving]
  - Blood glucose increased [Unknown]
  - Weight increased [Recovering/Resolving]
  - Blood cholesterol increased [Unknown]
